FAERS Safety Report 25408850 (Version 1)
Quarter: 2025Q2

REPORT INFORMATION
  Report Type: Spontaneous
  Country: DE (occurrence: DE)
  Receive Date: 20250607
  Receipt Date: 20250607
  Transmission Date: 20250717
  Serious: Yes (Other)
  Sender: MSN LABORATORIES PRIVATE LIMITED
  Company Number: DE-SANDOZ-SDZ2025DE019957

PATIENT

DRUGS (4)
  1. ATORVASTATIN [Suspect]
     Active Substance: ATORVASTATIN
     Indication: Hypercholesterolaemia
     Dosage: 80 MG, ONCE A DAY (QD)
     Route: 048
     Dates: start: 20240911, end: 20241204
  2. ATORVASTATIN [Suspect]
     Active Substance: ATORVASTATIN
     Dosage: 40 MG, ONCE A DAY (QD)
     Route: 048
     Dates: start: 20241217
  3. EZETIMIBE [Suspect]
     Active Substance: EZETIMIBE
     Indication: Hypercholesterolaemia
     Dosage: 10 MG, ONCE A DAY (QD)
     Route: 048
     Dates: start: 20241217
  4. INCLISIRAN [Suspect]
     Active Substance: INCLISIRAN
     Indication: Hypercholesterolaemia
     Route: 048
     Dates: start: 20241024, end: 20241204

REACTIONS (3)
  - Hyperkalaemia [Recovered/Resolved]
  - Myopathy [Recovered/Resolved]
  - Hepatic enzyme increased [Recovered/Resolved]

NARRATIVE: CASE EVENT DATE: 20241202
